FAERS Safety Report 7555039-4 (Version None)
Quarter: 2011Q2

REPORT INFORMATION
  Report Type: 
  Country: None (occurrence: None)
  Receive Date: 20110617
  Receipt Date: 20110614
  Transmission Date: 20111010
  Serious: Yes (Hospitalization, Other)
  Sender: FDA-Public Use
  Company Number: US-PFIZER INC-2011068123

PATIENT
  Sex: Female

DRUGS (2)
  1. LEXAPRO [Concomitant]
     Indication: DEPRESSION
     Dosage: UNK
     Dates: start: 20040101, end: 20100101
  2. CHANTIX [Suspect]
     Indication: SMOKING CESSATION THERAPY
     Dosage: STARTER MONTH PACK AND CONTINUING MONTH PACKS
     Dates: start: 20090101, end: 20090301

REACTIONS (11)
  - ANXIETY [None]
  - HEADACHE [None]
  - SUICIDE ATTEMPT [None]
  - COGNITIVE DISORDER [None]
  - DEPRESSION [None]
  - DISTURBANCE IN ATTENTION [None]
  - INSOMNIA [None]
  - BRAIN HYPOXIA [None]
  - OVERDOSE [None]
  - INJURY [None]
  - AMNESIA [None]
